FAERS Safety Report 4738082-X (Version None)
Quarter: 2005Q3

REPORT INFORMATION
  Report Type: 
  Country: None (occurrence: None)
  Receive Date: 20050809
  Receipt Date: 20050803
  Transmission Date: 20060218
  Serious: Yes (Other)
  Sender: FDA-Public Use
  Company Number: 200517003GDDC

PATIENT
  Sex: Male

DRUGS (1)
  1. ARAVA [Suspect]
     Dosage: DOSE: UNK
     Route: 048

REACTIONS (1)
  - HEPATIC ENZYME INCREASED [None]
